FAERS Safety Report 12968443 (Version 1)
Quarter: 2016Q4

REPORT INFORMATION
  Report Type: Spontaneous
  Country: US (occurrence: US)
  Receive Date: 20161120
  Receipt Date: 20161120
  Transmission Date: 20170207
  Serious: No
  Sender: FDA-Public Use
  Company Number: None

PATIENT
  Age: 56 Year
  Sex: Female

DRUGS (1)
  1. TYSABRI [Suspect]
     Active Substance: NATALIZUMAB
     Indication: MULTIPLE SCLEROSIS
     Dosage: 20MG DILUTE 15 ML (300 MG) IN
     Dates: start: 20160219, end: 20161017

REACTIONS (1)
  - Malaise [None]

NARRATIVE: CASE EVENT DATE: 20161017
